FAERS Safety Report 8596195-9 (Version None)
Quarter: 2012Q3

REPORT INFORMATION
  Report Type: 
  Country: None (occurrence: None)
  Receive Date: 20120815
  Receipt Date: 20120808
  Transmission Date: 20120928
  Serious: Yes (Congenital Anomaly)
  Sender: FDA-Public Use
  Company Number: US-GLAXOSMITHKLINE-A0989561A

PATIENT
  Sex: Female

DRUGS (1)
  1. PAXIL CR [Suspect]
     Dosage: 37.5MG UNKNOWN
     Route: 064

REACTIONS (6)
  - CRANIOSYNOSTOSIS [None]
  - PILONIDAL CYST CONGENITAL [None]
  - TETHERED CORD SYNDROME [None]
  - PREMATURE BABY [None]
  - FOETAL EXPOSURE DURING PREGNANCY [None]
  - HYDROURETER [None]
